FAERS Safety Report 7631754-9 (Version None)
Quarter: 2011Q3

REPORT INFORMATION
  Report Type: 
  Country: None (occurrence: None)
  Receive Date: 20110725
  Receipt Date: 20110307
  Transmission Date: 20111222
  Serious: No
  Sender: FDA-Public Use
  Company Number: US-BRISTOL-MYERS SQUIBB COMPANY-15590953

PATIENT
  Age: 37 Year
  Sex: Female
  Weight: 69 kg

DRUGS (2)
  1. COUMADIN [Suspect]
     Indication: PULMONARY EMBOLISM
     Dates: start: 20110301
  2. HEPARIN SODIUM [Suspect]
     Indication: PULMONARY EMBOLISM
     Dates: start: 20110301

REACTIONS (2)
  - PAIN IN EXTREMITY [None]
  - HEART RATE INCREASED [None]
